FAERS Safety Report 22680616 (Version 12)
Quarter: 2024Q3

REPORT INFORMATION
  Report Type: Report from Study
  Country: US (occurrence: US)
  Receive Date: 20230707
  Receipt Date: 20240716
  Transmission Date: 20241017
  Serious: Yes (Other)
  Sender: ACADIA PHARMACEUTICALS
  Company Number: US-ACADIA PHARMACEUTICALS INC.-ACA-2023-TRF-002407

PATIENT
  Sex: Female

DRUGS (27)
  1. DAYBUE [Suspect]
     Active Substance: TROFINETIDE
     Indication: Rett syndrome
     Dosage: 10 MILLILITER, BID
     Dates: start: 20230607
  2. DAYBUE [Suspect]
     Active Substance: TROFINETIDE
     Dosage: 30 MILLILITER, BID
  3. DAYBUE [Suspect]
     Active Substance: TROFINETIDE
     Dosage: 20 MILLILITER, BID
  4. DAYBUE [Suspect]
     Active Substance: TROFINETIDE
     Dosage: 30 MILLILITER, BID
     Dates: start: 20231031
  5. DAYBUE [Suspect]
     Active Substance: TROFINETIDE
     Dosage: 40 MILLILITER, BID
     Dates: start: 20240422
  6. DAYBUE [Suspect]
     Active Substance: TROFINETIDE
     Dosage: 35 MILLILITER, BID
     Dates: start: 20240319
  7. MIRALAX [Concomitant]
     Active Substance: POLYETHYLENE GLYCOL 3350
  8. MILK OF MAGNESIA [Concomitant]
     Active Substance: MAGNESIUM HYDROXIDE
  9. AZELASTINE [Concomitant]
     Active Substance: AZELASTINE\AZELASTINE HYDROCHLORIDE
  10. BUSPIRONE [Concomitant]
     Active Substance: BUSPIRONE HYDROCHLORIDE
  11. CLONAZEPAM [Concomitant]
     Active Substance: CLONAZEPAM
  12. CLONIDINE [Concomitant]
     Active Substance: CLONIDINE
  13. CULTURELLE [Concomitant]
     Active Substance: LACTOBACILLUS RHAMNOSUS
  14. ATROVENT [Concomitant]
     Active Substance: IPRATROPIUM BROMIDE
  15. KEPPRA [Concomitant]
     Active Substance: LEVETIRACETAM
  16. LEVOCARNITINE [Concomitant]
     Active Substance: LEVOCARNITINE
  17. LORATADINE [Concomitant]
     Active Substance: LORATADINE
  18. PRILOSEC [Concomitant]
     Active Substance: OMEPRAZOLE MAGNESIUM
  19. VITAMIN B6 [Concomitant]
     Active Substance: PYRIDOXINE HYDROCHLORIDE
  20. XYZAL [Concomitant]
     Active Substance: LEVOCETIRIZINE DIHYDROCHLORIDE
     Indication: Hypersensitivity
  21. ZONISAMIDE [Concomitant]
     Active Substance: ZONISAMIDE
  22. ZYRTEC [Concomitant]
     Active Substance: CETIRIZINE HYDROCHLORIDE
  23. FAMOTIDINE [Concomitant]
     Active Substance: FAMOTIDINE
  24. IPRATROPIUM BROMIDE [Concomitant]
     Active Substance: IPRATROPIUM BROMIDE\IPRATROPIUM BROMIDE ANHYDROUS
  25. SIMETHICONE (DIMETHICONE) [Concomitant]
     Active Substance: DIMETHICONE
  26. MULTIVITAMIN IRON [Concomitant]
  27. ROPINIROLE [Concomitant]
     Active Substance: ROPINIROLE

REACTIONS (27)
  - Electrocardiogram QT prolonged [Not Recovered/Not Resolved]
  - Gastrooesophageal reflux disease [Not Recovered/Not Resolved]
  - Constipation [Not Recovered/Not Resolved]
  - Retching [Unknown]
  - Gastrooesophageal reflux disease [Recovered/Resolved]
  - Productive cough [Unknown]
  - Drooling [Unknown]
  - Constipation [Recovered/Resolved]
  - Retching [Not Recovered/Not Resolved]
  - Nasal congestion [Recovered/Resolved]
  - Gastroenteritis viral [Not Recovered/Not Resolved]
  - Gastrooesophageal reflux disease [Not Recovered/Not Resolved]
  - Ill-defined disorder [Not Recovered/Not Resolved]
  - Adverse drug reaction [Recovered/Resolved]
  - Flatulence [Not Recovered/Not Resolved]
  - Underdose [Not Recovered/Not Resolved]
  - Secretion discharge [Unknown]
  - Pharyngitis streptococcal [Not Recovered/Not Resolved]
  - Drooling [Unknown]
  - Fungal infection [Recovered/Resolved]
  - Urinary tract infection [Recovered/Resolved]
  - Dermatitis diaper [Recovered/Resolved]
  - Gastrooesophageal reflux disease [Recovered/Resolved]
  - Vomiting [Recovering/Resolving]
  - Vomiting [Unknown]
  - Vomiting [Not Recovered/Not Resolved]
  - Vomiting [Recovered/Resolved]

NARRATIVE: CASE EVENT DATE: 20230101
